FAERS Safety Report 19117783 (Version 1)
Quarter: 2021Q2

REPORT INFORMATION
  Report Type: Other
  Country: IT (occurrence: IT)
  Receive Date: 20210409
  Receipt Date: 20210409
  Transmission Date: 20210717
  Serious: Yes (Other)
  Sender: FDA-Public Use
  Company Number: IT-VALIDUS PHARMACEUTICALS LLC-IT-2021VAL000192

PATIENT
  Age: 64 Year
  Sex: Male
  Weight: 116 kg

DRUGS (10)
  1. ZAROXOLYN [Suspect]
     Active Substance: METOLAZONE
     Indication: HYPERTENSION
     Dosage: 5 MG, QD
     Route: 048
     Dates: start: 20190322, end: 20190413
  2. PANTOPRAZOLO KRKA [Concomitant]
     Indication: GASTROOESOPHAGEAL REFLUX DISEASE
     Dosage: 20 MG, UNK
     Dates: start: 20190313, end: 20190413
  3. CARDICOR [Concomitant]
     Active Substance: BISOPROLOL
     Indication: CARDIAC FAILURE
     Dosage: 5 MG, UNK
     Dates: start: 20190313, end: 20190413
  4. LASIX [Suspect]
     Active Substance: FUROSEMIDE
     Indication: OEDEMA DUE TO CARDIAC DISEASE
     Dosage: 120 MG, QD
     Route: 042
     Dates: start: 20190314, end: 20190402
  5. LEVOTIROXINA TEVA [Concomitant]
     Indication: HYPOTHYROIDISM
     Dosage: 50 UG/G CRE, UNK
     Dates: start: 20190313, end: 20190413
  6. DEURSIL [Concomitant]
     Active Substance: URSODIOL
     Indication: BILIARY DYSPEPSIA
     Dosage: 450 MG, UNK
     Dates: start: 20190313, end: 20190413
  7. POTASSIUM CANRENOATE [Concomitant]
     Active Substance: CANRENOATE POTASSIUM
     Indication: HYPERALDOSTERONISM
     Dosage: UNK
     Dates: start: 20190313, end: 20190413
  8. LIXIANA [Concomitant]
     Active Substance: EDOXABAN TOSYLATE
     Indication: VENOUS THROMBOSIS
     Dosage: 30 MG, UNK
     Dates: start: 20190313, end: 20190413
  9. ALLOPURINOLO [Concomitant]
     Active Substance: ALLOPURINOL
     Indication: PRODUCT USED FOR UNKNOWN INDICATION
     Dosage: UNK
     Dates: start: 20190313, end: 20190413
  10. ESAPENT [Concomitant]
     Indication: HYPERTRIGLYCERIDAEMIA
     Dosage: 1000 MG, UNK
     Dates: start: 20190313, end: 20190413

REACTIONS (1)
  - Syncope [Recovered/Resolved]

NARRATIVE: CASE EVENT DATE: 20190402
